FAERS Safety Report 10009671 (Version 1)
Quarter: 2014Q1

REPORT INFORMATION
  Report Type: Spontaneous
  Country: US (occurrence: US)
  Receive Date: 20140312
  Receipt Date: 20140312
  Transmission Date: 20141002
  Serious: No
  Sender: FDA-Public Use
  Company Number: US-INCYTE CORPORATION-2012IN002105

PATIENT
  Age: 87 Year
  Sex: Male

DRUGS (8)
  1. JAKAFI [Suspect]
     Indication: MYELOFIBROSIS
     Dosage: 20 MG, BID
     Route: 048
     Dates: start: 20121017
  2. ASPIRIN [Concomitant]
     Dosage: 81 MG, QD
  3. CRESTOR [Concomitant]
     Dosage: 10 MG, QD
  4. LISINOPRIL [Concomitant]
     Dosage: 10 MG, QD
  5. DONEPEZIL [Concomitant]
     Dosage: 5 MG, QD
  6. MEGESTROL [Concomitant]
  7. DOCUSATE SODIUM [Concomitant]
     Dosage: 100 MG, QD
  8. TRAVATAN [Concomitant]
     Dosage: 1 GTT, EACH EYE, QHS

REACTIONS (1)
  - Pollakiuria [Not Recovered/Not Resolved]
